FAERS Safety Report 10481920 (Version 1)
Quarter: 2014Q3

REPORT INFORMATION
  Report Type: Spontaneous
  Country: CH (occurrence: CH)
  Receive Date: 20140929
  Receipt Date: 20140929
  Transmission Date: 20150326
  Serious: Yes (Other)
  Sender: FDA-Public Use
  Company Number: CH-US-EMD SERONO, INC.-7321777

PATIENT
  Sex: Female
  Weight: 55 kg

DRUGS (1)
  1. SEROPHENE [Suspect]
     Active Substance: CLOMIPHENE CITRATE
     Indication: INFERTILITY
     Dosage: FROM 3RD TO 7TH CYCLE DAY WITH 2X50 MG TABLETS DAILY RESPECTIVELY
     Route: 048
     Dates: start: 20140818, end: 20140822

REACTIONS (3)
  - Visual impairment [Recovered/Resolved]
  - Disturbance in attention [Recovered/Resolved]
  - Nausea [Recovered/Resolved]

NARRATIVE: CASE EVENT DATE: 20140818
